FAERS Safety Report 22275216 (Version 1)
Quarter: 2023Q2

REPORT INFORMATION
  Report Type: Spontaneous
  Country: None (occurrence: GB)
  Receive Date: 20230502
  Receipt Date: 20230502
  Transmission Date: 20230722
  Serious: Yes (Other)
  Sender: FDA-Public Use
  Company Number: GB-Canton Laboratories, LLC-2141039

PATIENT
  Sex: Male

DRUGS (46)
  1. NAPROSYN [Suspect]
     Active Substance: NAPROXEN
     Dates: end: 20230207
  2. APIXABAN [Suspect]
     Active Substance: APIXABAN
  3. INSULIN GLARGINE [Concomitant]
     Active Substance: INSULIN GLARGINE
     Dates: start: 20211013, end: 20230106
  4. ALBUTEROL SULFATE [Concomitant]
     Active Substance: ALBUTEROL SULFATE
     Dates: start: 20220818
  5. ALBUTEROL [Concomitant]
     Active Substance: ALBUTEROL
  6. AMITRIPTYLINE HYDROCHLORIDE [Concomitant]
     Active Substance: AMITRIPTYLINE HYDROCHLORIDE
     Dates: start: 20221123
  7. AMLODIPINE [Concomitant]
     Active Substance: AMLODIPINE BESYLATE
  8. ASPIRIN [Concomitant]
     Active Substance: ASPIRIN
     Dates: start: 20230126
  9. ATORVASTATIN CALCIUM [Concomitant]
     Active Substance: ATORVASTATIN CALCIUM
  10. BENDROFLUMETHIAZIDE [Concomitant]
     Active Substance: BENDROFLUMETHIAZIDE
     Dates: start: 20221123
  11. BISOPROLOL. [Concomitant]
     Active Substance: BISOPROLOL FUMARATE
     Dates: start: 20230301
  12. BUMETANIDE [Concomitant]
     Active Substance: BUMETANIDE
     Dates: start: 20220525, end: 20230217
  13. CHLORAMPHENICOL SODIUM SUCCINATE [Concomitant]
     Active Substance: CHLORAMPHENICOL SODIUM SUCCINATE
     Dates: start: 20230318
  14. CITALOPRAM [Concomitant]
     Active Substance: CITALOPRAM HYDROBROMIDE
     Dates: start: 20230318
  15. COMIRNATY [Concomitant]
     Active Substance: TOZINAMERAN
  16. DOCUSATE SODIUM [Concomitant]
     Active Substance: DOCUSATE SODIUM
  17. DOXAZOSIN [Concomitant]
     Active Substance: DOXAZOSIN MESYLATE
  18. EDOXABAN [Concomitant]
     Active Substance: EDOXABAN
     Dates: start: 20221205
  19. ESTRIOL [Concomitant]
     Active Substance: ESTRIOL
     Dates: start: 20221123
  20. FEXOFENADINE [Concomitant]
     Active Substance: FEXOFENADINE HYDROCHLORIDE
     Dates: start: 20230317
  21. FLUTICASONE PROPIONATE [Concomitant]
     Active Substance: FLUTICASONE PROPIONATE
  22. FOSFOMYCIN [Concomitant]
     Active Substance: FOSFOMYCIN
     Dates: start: 20230227, end: 20230228
  23. GABAPENTIN [Concomitant]
     Active Substance: GABAPENTIN
  24. GAVISCON [Concomitant]
     Active Substance: ALUMINUM HYDROXIDE\MAGNESIUM CARBONATE
  25. GLICLAZIDE [Concomitant]
     Active Substance: GLICLAZIDE
  26. NITROGLYCERIN [Concomitant]
     Active Substance: NITROGLYCERIN
  27. LACTULOSE [Concomitant]
     Active Substance: LACTULOSE
     Dates: start: 20221104
  28. POLYETHYLENE GLYCOL 3350\POTASSIUM CHLORIDE\SODIUM BICARBONATE\SODIUM [Concomitant]
     Active Substance: POLYETHYLENE GLYCOL 3350\POTASSIUM CHLORIDE\SODIUM BICARBONATE\SODIUM CHLORIDE
  29. LOSARTAN [Concomitant]
     Active Substance: LOSARTAN
  30. METFORMIN [Concomitant]
     Active Substance: METFORMIN HYDROCHLORIDE
  31. Movelat [Concomitant]
  32. OLANZAPINE [Concomitant]
     Active Substance: OLANZAPINE
  33. OMEPRAZOLE [Concomitant]
     Active Substance: OMEPRAZOLE
     Dates: start: 20221205
  34. ACETAMINOPHEN [Concomitant]
     Active Substance: ACETAMINOPHEN
     Dates: start: 20230111, end: 20230123
  35. PREDNISOLONE [Concomitant]
     Active Substance: PREDNISOLONE
  36. RAMIPRIL [Concomitant]
     Active Substance: RAMIPRIL
     Dates: start: 20221205
  37. ROSUVASTATIN [Concomitant]
     Active Substance: ROSUVASTATIN
     Dates: start: 20210317, end: 20230217
  38. SENNA [Concomitant]
     Active Substance: SENNA LEAF\SENNOSIDES\SENNOSIDES A AND B
     Dates: start: 20211217
  39. SILDENAFIL [Concomitant]
     Active Substance: SILDENAFIL
  40. SILDENAFIL CITRATE [Concomitant]
     Active Substance: SILDENAFIL CITRATE
  41. SITAGLIPTIN [Concomitant]
     Active Substance: SITAGLIPTIN
  42. SOTALOL [Concomitant]
     Active Substance: SOTALOL
  43. SPIRONOLACTONE [Concomitant]
     Active Substance: SPIRONOLACTONE
     Dates: start: 20230105
  44. WARFARIN SODIUM [Concomitant]
     Active Substance: WARFARIN SODIUM
  45. ACETAMINOPHEN\CODEINE PHOSPHATE [Concomitant]
     Active Substance: ACETAMINOPHEN\CODEINE PHOSPHATE
  46. MINERAL OIL [Concomitant]
     Active Substance: MINERAL OIL

REACTIONS (65)
  - Diarrhoea [None]
  - Malaise [None]
  - Abdominal discomfort [None]
  - Headache [None]
  - Nausea [None]
  - Hallucination [None]
  - Angioedema [None]
  - COVID-19 [None]
  - Dizziness [Recovered/Resolved]
  - Tinnitus [None]
  - Arthralgia [Recovered/Resolved]
  - Pain of skin [Recovered/Resolved]
  - Peripheral swelling [Recovered/Resolved]
  - Disturbance in attention [Recovered/Resolved]
  - Cognitive disorder [Recovered/Resolved]
  - Memory impairment [None]
  - Visual impairment [None]
  - Diplopia [None]
  - Vasculitis [None]
  - Carotid artery occlusion [None]
  - Transient ischaemic attack [Recovered/Resolved]
  - Pruritus genital [None]
  - Sleep terror [None]
  - Fatigue [Recovered/Resolved]
  - Vomiting [Recovered/Resolved]
  - Ventricular tachycardia [None]
  - Pericarditis [None]
  - Cardiospasm [None]
  - Dyspnoea [None]
  - Atrial tachycardia [None]
  - Anxiety [None]
  - Muscular weakness [None]
  - Feeling abnormal [None]
  - Insomnia [None]
  - Heart rate increased [None]
  - Muscle twitching [None]
  - Abdominal pain upper [None]
  - Dehydration [None]
  - Hyperhidrosis [None]
  - Rash [None]
  - Lip swelling [None]
  - Pruritus [None]
  - Palmoplantar keratoderma [None]
  - Dry skin [None]
  - Myocardial infarction [None]
  - Chest pain [None]
  - Palpitations [None]
  - Tachycardia [None]
  - Subarachnoid haemorrhage [None]
  - Pain [None]
  - Anosmia [None]
  - Eye pruritus [None]
  - Facial pain [None]
  - Back pain [None]
  - Blood glucose increased [None]
  - Amnesia [None]
  - Blindness [None]
  - Immunisation [None]
  - Alopecia [Recovered/Resolved]
  - Pyrexia [None]
  - Tension headache [None]
  - Migraine [None]
  - Palmoplantar keratoderma [None]
  - Intentional product misuse [None]
  - Off label use [None]

NARRATIVE: CASE EVENT DATE: 20210101
